FAERS Safety Report 4409379-8 (Version None)
Quarter: 2004Q3

REPORT INFORMATION
  Report Type: 
  Country: None (occurrence: None)
  Receive Date: 20040727
  Receipt Date: 20040727
  Transmission Date: 20050211
  Serious: No
  Sender: FDA-Public Use
  Company Number: None

PATIENT
  Age: 79 Year
  Sex: Male

DRUGS (12)
  1. CLOPIDOGREL [Suspect]
     Indication: CORONARY ARTERY DISEASE
     Dosage: 75 MG QD PO/CHRONIC
     Route: 048
  2. CLOPIDOGREL [Suspect]
     Indication: STENT PLACEMENT
     Dosage: 75 MG QD PO/CHRONIC
     Route: 048
  3. ASPIRIN [Suspect]
     Dosage: 81 MG QD PO
     Route: 048
  4. VITAMIN E [Concomitant]
  5. NORVASC [Concomitant]
  6. MULTIVITAMIN [Concomitant]
  7. SYNTHROID [Concomitant]
  8. LORTAB [Concomitant]
  9. FOLIC ACID [Concomitant]
  10. FLEXERIL [Concomitant]
  11. AMOXICILLIN AND CLAVULANATE POTASSIUM [Concomitant]
  12. EVOXAC (CEFIMELINE) [Concomitant]

REACTIONS (1)
  - SUBDURAL HAEMATOMA [None]
